FAERS Safety Report 12890430 (Version 2)
Quarter: 2016Q4

REPORT INFORMATION
  Report Type: Report from Study
  Country: US (occurrence: US)
  Receive Date: 20161027
  Receipt Date: 20161219
  Transmission Date: 20170207
  Serious: Yes (Hospitalization, Other)
  Sender: FDA-Public Use
  Company Number: PHEH2016US027530

PATIENT
  Age: 72 Year
  Sex: Male
  Weight: 74.6 kg

DRUGS (1)
  1. MEKINIST [Suspect]
     Active Substance: TRAMETINIB DIMETHYL SULFOXIDE
     Indication: CHRONIC MYELOID LEUKAEMIA
     Dosage: 2 MG, QD
     Route: 048
     Dates: start: 20160928, end: 20161019

REACTIONS (19)
  - Pyrexia [Recovered/Resolved]
  - Platelet count decreased [Unknown]
  - White blood cell count decreased [Unknown]
  - Pruritus [Unknown]
  - Blood lactate dehydrogenase increased [Unknown]
  - Red blood cells urine negative [Unknown]
  - Rash generalised [Recovered/Resolved]
  - Stomatitis [Recovered/Resolved]
  - Lymphocyte count decreased [Unknown]
  - Haemoglobin decreased [Unknown]
  - Monocyte count decreased [Unknown]
  - Lymphocyte count increased [Unknown]
  - Mucous membrane disorder [Unknown]
  - Diarrhoea [Recovered/Resolved]
  - Chills [Recovered/Resolved]
  - Febrile neutropenia [Unknown]
  - Malaise [Unknown]
  - Blood uric acid decreased [Unknown]
  - Haematocrit decreased [Unknown]

NARRATIVE: CASE EVENT DATE: 20161019
